FAERS Safety Report 24730618 (Version 1)
Quarter: 2024Q4

REPORT INFORMATION
  Report Type: Spontaneous
  Country: GB (occurrence: GB)
  Receive Date: 20241213
  Receipt Date: 20241213
  Transmission Date: 20250115
  Serious: Yes (Other)
  Sender: AUROBINDO
  Company Number: GB-MHRA-MED-202411290023509550-VSJHM

PATIENT
  Age: 31 Year
  Sex: Male
  Weight: 95 kg

DRUGS (2)
  1. METRONIDAZOLE [Suspect]
     Active Substance: METRONIDAZOLE
     Indication: Diverticulitis
     Dosage: 400 MILLIGRAM, 3 TIMES A DAY
     Route: 065
     Dates: start: 20241126
  2. CEPHALEXIN [Concomitant]
     Active Substance: CEPHALEXIN
     Indication: Diverticulitis
     Dosage: UNK
     Route: 065
     Dates: start: 20241126

REACTIONS (1)
  - Deafness unilateral [Recovered/Resolved]

NARRATIVE: CASE EVENT DATE: 20241128
